FAERS Safety Report 8997746 (Version 1)
Quarter: 2013Q1

REPORT INFORMATION
  Report Type: Spontaneous
  Country: BR (occurrence: BR)
  Receive Date: 20130104
  Receipt Date: 20130104
  Transmission Date: 20140127
  Serious: Yes (Death)
  Sender: FDA-Public Use
  Company Number: BR-ROCHE-1175986

PATIENT
  Age: 86 Year
  Sex: Male

DRUGS (1)
  1. METALYSE [Suspect]
     Indication: ACUTE MYOCARDIAL INFARCTION
     Dosage: 50 MG (50 MG, 1 AMPOULE)
     Route: 040
     Dates: start: 20100621, end: 20100621

REACTIONS (6)
  - Death [Fatal]
  - Hypotension [Unknown]
  - Agitation [Unknown]
  - Confusional state [Unknown]
  - Convulsion [Unknown]
  - Depressed level of consciousness [Unknown]
